FAERS Safety Report 9380649 (Version 1)
Quarter: 2013Q3

REPORT INFORMATION
  Report Type: Spontaneous
  Country: US (occurrence: US)
  Receive Date: 20130702
  Receipt Date: 20130702
  Transmission Date: 20140515
  Serious: Yes (Life-Threatening, Other)
  Sender: FDA-Public Use
  Company Number: CHPA2013US010407

PATIENT
  Age: 47 Year
  Sex: Female

DRUGS (3)
  1. TRIAMINIC SORE THROAT FORMULA [Suspect]
     Indication: OROPHARYNGEAL PAIN
     Dosage: UNK, UNK
     Route: 048
     Dates: start: 1996
  2. EXCEDRIN MIGRAINE [Suspect]
     Indication: MIGRAINE
     Dosage: ACCORDING TO LABEL
     Route: 048
     Dates: start: 1996
  3. ADVAIR [Concomitant]
     Indication: ASTHMA
     Dosage: UNK, UNK

REACTIONS (13)
  - Heat stroke [Recovered/Resolved]
  - Memory impairment [Recovering/Resolving]
  - Speech disorder [Recovering/Resolving]
  - Loss of consciousness [Recovered/Resolved]
  - Diabetes mellitus [Recovering/Resolving]
  - Fibromyalgia [Not Recovered/Not Resolved]
  - Migraine [Not Recovered/Not Resolved]
  - Pain [Not Recovered/Not Resolved]
  - Arthralgia [Not Recovered/Not Resolved]
  - Pain in extremity [Unknown]
  - Dissociation [Recovered/Resolved]
  - Menopause [Not Recovered/Not Resolved]
  - Headache [Recovered/Resolved]
